FAERS Safety Report 24950194 (Version 1)
Quarter: 2025Q1

REPORT INFORMATION
  Report Type: Spontaneous
  Country: US (occurrence: None)
  Receive Date: 20250210
  Receipt Date: 20250210
  Transmission Date: 20250409
  Serious: Yes (Hospitalization)
  Sender: FDA-CTU
  Company Number: None

PATIENT
  Sex: Male

DRUGS (5)
  1. SILDENAFIL CITRATE [Suspect]
     Active Substance: SILDENAFIL CITRATE
     Indication: Pulmonary arterial hypertension
     Dosage: FREQUENCY : 3 TIMES A DAY;?
     Route: 048
     Dates: start: 202410
  2. MYCOPHENOLIC ACID [Suspect]
     Active Substance: MYCOPHENOLIC ACID
  3. OFEV [Suspect]
     Active Substance: NINTEDANIB
  4. TYVASO [Suspect]
     Active Substance: TREPROSTINIL
  5. MONTELUKAST [Concomitant]
     Active Substance: MONTELUKAST

REACTIONS (1)
  - Lung transplant [None]
